FAERS Safety Report 10333586 (Version 1)
Quarter: 2014Q3

REPORT INFORMATION
  Report Type: Report from Study
  Country: GB (occurrence: GB)
  Receive Date: 20140723
  Receipt Date: 20140723
  Transmission Date: 20150326
  Serious: Yes (Death)
  Sender: FDA-Public Use
  Company Number: GB-ROCHE-1438805

PATIENT
  Age: 65 Year
  Sex: Female

DRUGS (13)
  1. DEXAMETHASONE. [Concomitant]
     Active Substance: DEXAMETHASONE
     Route: 048
     Dates: end: 20130529
  2. LOPERAMIDE [Concomitant]
     Active Substance: LOPERAMIDE
     Indication: COLON CANCER
     Route: 048
     Dates: end: 20130529
  3. DOMPERIDONE [Concomitant]
     Active Substance: DOMPERIDONE
     Indication: COLON CANCER
     Route: 048
     Dates: end: 20130529
  4. ATROPINE SULPHATE [Concomitant]
     Indication: COLON CANCER
     Route: 058
     Dates: end: 20130529
  5. DEXAMETHASONE. [Concomitant]
     Active Substance: DEXAMETHASONE
     Indication: COLON CANCER
     Route: 048
     Dates: end: 20130529
  6. IRINOTECAN [Concomitant]
     Active Substance: IRINOTECAN
     Indication: COLON CANCER
     Route: 042
     Dates: end: 20130529
  7. FLUOROURACIL. [Concomitant]
     Active Substance: FLUOROURACIL
     Indication: COLON CANCER
     Route: 040
     Dates: end: 20130529
  8. DEXTROSE, SODIUM CHLORIDE, AND POTASSIUM CHLORIDE [Concomitant]
     Active Substance: DEXTROSE\POTASSIUM CHLORIDE\SODIUM CHLORIDE
     Indication: COLON CANCER
     Route: 042
     Dates: end: 20130529
  9. GLUCOSE 5% [Concomitant]
     Active Substance: DEXTROSE
     Indication: COLON CANCER
     Route: 042
     Dates: end: 20130529
  10. BEVACIZUMAB [Suspect]
     Active Substance: BEVACIZUMAB
     Indication: COLON CANCER
     Route: 042
     Dates: end: 20130529
  11. ONDANSETRON [Concomitant]
     Active Substance: ONDANSETRON
     Indication: COLON CANCER
     Route: 048
     Dates: end: 20130529
  12. FLUOROURACIL. [Concomitant]
     Active Substance: FLUOROURACIL
     Route: 050
     Dates: end: 20130529
  13. FOLINIC ACID [Concomitant]
     Active Substance: LEUCOVORIN
     Indication: COLON CANCER
     Route: 042
     Dates: end: 20130529

REACTIONS (1)
  - Death [Fatal]
